FAERS Safety Report 17189461 (Version 1)
Quarter: 2019Q4

REPORT INFORMATION
  Report Type: Spontaneous
  Country: US (occurrence: US)
  Receive Date: 20191223
  Receipt Date: 20191223
  Transmission Date: 20200122
  Serious: Yes (Other)
  Sender: FDA-Public Use
  Company Number: US-ROCHE-2504001

PATIENT
  Sex: Female
  Weight: 100.9 kg

DRUGS (1)
  1. RITUXAN [Suspect]
     Active Substance: RITUXIMAB
     Indication: THROMBOCYTOPENIA
     Dosage: STRENGTH OF 817.5 MG IN 817.5 ML INFUSION
     Route: 065
     Dates: start: 20191127

REACTIONS (3)
  - Off label use [Unknown]
  - Basedow^s disease [Unknown]
  - Intentional product use issue [Unknown]
